FAERS Safety Report 7377970-5 (Version None)
Quarter: 2011Q1

REPORT INFORMATION
  Report Type: 
  Country: None (occurrence: None)
  Receive Date: 20110328
  Receipt Date: 20110325
  Transmission Date: 20110831
  Serious: Yes (Hospitalization)
  Sender: FDA-Public Use
  Company Number: IT-SANOFI-AVENTIS-2011SA014795

PATIENT
  Age: 68 Year
  Sex: Male

DRUGS (12)
  1. SIVASTIN [Concomitant]
     Route: 048
  2. LANTUS [Suspect]
     Route: 058
     Dates: start: 20080209, end: 20110209
  3. CLONIDINE HYDROCHLORIDE [Concomitant]
     Route: 065
  4. AMLODIPINE BESYLATE [Concomitant]
     Route: 048
  5. ARANESP [Concomitant]
     Route: 065
  6. NITRO-DUR [Concomitant]
     Route: 065
  7. NOVORAPID [Suspect]
     Route: 058
     Dates: start: 20000209, end: 20110209
  8. BISOPROLOL [Concomitant]
     Route: 048
  9. ROCALTROL [Concomitant]
     Route: 065
  10. ASPIRIN [Concomitant]
     Route: 048
  11. LASIX [Concomitant]
     Route: 048
  12. LASIX [Concomitant]
     Route: 048

REACTIONS (2)
  - ROAD TRAFFIC ACCIDENT [None]
  - HYPOGLYCAEMIA [None]
